FAERS Safety Report 21696550 (Version 1)
Quarter: 2022Q4

REPORT INFORMATION
  Report Type: Spontaneous
  Country: US (occurrence: US)
  Receive Date: 20221207
  Receipt Date: 20221207
  Transmission Date: 20230112
  Serious: No
  Sender: FDA-Public Use
  Company Number: US-JNJFOC-20221207892

PATIENT
  Sex: Female

DRUGS (1)
  1. SPRAVATO [Suspect]
     Active Substance: ESKETAMINE
     Indication: Depression
     Route: 065

REACTIONS (7)
  - Extrasystoles [Unknown]
  - Vision blurred [Unknown]
  - Balance disorder [Unknown]
  - Eating disorder [Unknown]
  - Insomnia [Unknown]
  - Tremor [Unknown]
  - Anxiety [Unknown]
